FAERS Safety Report 5176873-4 (Version None)
Quarter: 2006Q4

REPORT INFORMATION
  Report Type: 
  Country: None (occurrence: None)
  Receive Date: 20061218
  Receipt Date: 20061110
  Transmission Date: 20070319
  Serious: No
  Sender: FDA-Public Use
  Company Number: PHEH2006US14341

PATIENT
  Age: 57 Year
  Sex: Female

DRUGS (2)
  1. METOPROLOL SUCCINATE [Suspect]
     Indication: HYPERTENSION
  2. AVALIDE [Concomitant]
     Dosage: 300/25 MG QD

REACTIONS (1)
  - DIZZINESS [None]
